FAERS Safety Report 13388373 (Version 1)
Quarter: 2017Q1

REPORT INFORMATION
  Report Type: Spontaneous
  Country: NZ (occurrence: NZ)
  Receive Date: 20170330
  Receipt Date: 20170330
  Transmission Date: 20170429
  Serious: Yes (Life-Threatening, Hospitalization, Other)
  Sender: FDA-Public Use
  Company Number: NZ-MYLANLABS-2017M1019611

PATIENT

DRUGS (4)
  1. LEVOFLOXACIN. [Concomitant]
     Active Substance: LEVOFLOXACIN
     Indication: INFLUENZA LIKE ILLNESS
     Route: 065
  2. OSELTAMIVIR [Concomitant]
     Active Substance: OSELTAMIVIR
     Indication: H1N1 INFLUENZA
     Route: 065
  3. VANCOMYCIN [Suspect]
     Active Substance: VANCOMYCIN
     Indication: INFLUENZA LIKE ILLNESS
     Dosage: DISCONTINUED FROM DAY 5.
     Route: 065
  4. CEFEPIME [Suspect]
     Active Substance: CEFEPIME HYDROCHLORIDE
     Indication: INFLUENZA LIKE ILLNESS
     Route: 065

REACTIONS (5)
  - Disease progression [Recovered/Resolved]
  - Septic shock [Recovered/Resolved]
  - Tracheobronchitis [Recovering/Resolving]
  - Respiratory failure [Recovered/Resolved]
  - Pneumonia staphylococcal [Recovered/Resolved]
